FAERS Safety Report 8589620-0 (Version None)
Quarter: 2012Q3

REPORT INFORMATION
  Report Type: 
  Country: None (occurrence: None)
  Receive Date: 20120813
  Receipt Date: 20120809
  Transmission Date: 20120928
  Serious: Yes (Life-Threatening, Hospitalization, Disabling, Other)
  Sender: FDA-Public Use
  Company Number: US-ROCHE-1080730

PATIENT
  Sex: Female
  Weight: 53.572 kg

DRUGS (14)
  1. ASPIRIN [Concomitant]
  2. LOVAZA [Concomitant]
  3. DIOVAN HCT [Concomitant]
  4. CLONIDINE [Concomitant]
  5. XOLAIR [Suspect]
     Indication: ASTHMA
     Route: 058
     Dates: start: 20030110
  6. ZERTIN [Concomitant]
  7. SYNTHROID [Concomitant]
  8. DULERA [Concomitant]
  9. WELCHOL [Concomitant]
  10. COUMADIN [Concomitant]
  11. SINGULAIR [Concomitant]
  12. METOPROLOL [Concomitant]
  13. XOPENEX [Concomitant]
  14. PROAIR HFA [Concomitant]

REACTIONS (4)
  - CEREBROVASCULAR ACCIDENT [None]
  - MYOCARDIAL INFARCTION [None]
  - PNEUMONIA [None]
  - CARDIAC FAILURE CONGESTIVE [None]
